FAERS Safety Report 5743405-9 (Version None)
Quarter: 2008Q2

REPORT INFORMATION
  Report Type: 
  Country: None (occurrence: None)
  Receive Date: 20080516
  Receipt Date: 20080516
  Transmission Date: 20081010
  Serious: Yes (Death, Hospitalization)
  Sender: FDA-Public Use
  Company Number: None

PATIENT
  Sex: Female
  Weight: 63 kg

DRUGS (4)
  1. FLUOROURACIL [Suspect]
     Dosage: 640 MG
     Dates: end: 20080430
  2. BEVACIZUMAB (RHUMAB VEGF) [Suspect]
     Dosage: 310 MG
     Dates: end: 20080430
  3. IRINOTECAN HCL [Suspect]
     Dosage: 288 MG
     Dates: end: 20080430
  4. LEUCOVORIN CALCIUM [Suspect]
     Dosage: 640 MG
     Dates: end: 20080430

REACTIONS (5)
  - DIARRHOEA [None]
  - HYPOTENSION [None]
  - NO THERAPEUTIC RESPONSE [None]
  - RESPIRATORY DISTRESS [None]
  - VOMITING [None]
